FAERS Safety Report 6216094-7 (Version None)
Quarter: 2009Q2

REPORT INFORMATION
  Report Type: 
  Country: None (occurrence: None)
  Receive Date: 20090605
  Receipt Date: 20090528
  Transmission Date: 20091009
  Serious: Yes (Hospitalization)
  Sender: FDA-Public Use
  Company Number: FR-JNJFOC-20090506525

PATIENT
  Sex: Female
  Weight: 61 kg

DRUGS (4)
  1. KETODERM [Suspect]
     Indication: DERMATITIS
     Route: 061
  2. PYOSTACINE [Concomitant]
     Route: 048
  3. ECONAZOLE NITRATE [Concomitant]
     Route: 061
  4. BETADINE [Concomitant]
     Route: 065

REACTIONS (5)
  - ANAEMIA [None]
  - DYSHIDROSIS [None]
  - ECZEMA [None]
  - EOSINOPHILIA [None]
  - TYPE IV HYPERSENSITIVITY REACTION [None]
